FAERS Safety Report 6852612-3 (Version None)
Quarter: 2010Q3

REPORT INFORMATION
  Report Type: 
  Country: None (occurrence: None)
  Receive Date: 20100717
  Receipt Date: 20071221
  Transmission Date: 20110219
  Serious: Yes (Other)
  Sender: FDA-Public Use
  Company Number: US-PFIZER INC-2007096690

PATIENT
  Sex: Female
  Weight: 78.8 kg

DRUGS (11)
  1. CHANTIX [Suspect]
     Indication: SMOKING CESSATION THERAPY
     Route: 048
     Dates: start: 20070917, end: 20070930
  2. CHANTIX [Suspect]
     Indication: TOBACCO ABUSE
  3. GEMFIBROZIL [Concomitant]
  4. LISINOPRIL [Concomitant]
     Indication: HYPERTENSION
  5. ATENOLOL [Concomitant]
  6. ACETYLSALICYLIC ACID [Concomitant]
  7. TROGLITAZONE [Concomitant]
  8. SIMVASTATIN [Concomitant]
  9. TICLOPIDINE HCL [Concomitant]
     Indication: CARDIAC DISORDER
  10. GLYBURIDE [Concomitant]
     Indication: DIABETES MELLITUS
  11. METFORMIN HCL [Concomitant]
     Indication: DIABETES MELLITUS

REACTIONS (10)
  - ABNORMAL DREAMS [None]
  - AGEUSIA [None]
  - APPETITE DISORDER [None]
  - DIARRHOEA [None]
  - DYSPEPSIA [None]
  - FATIGUE [None]
  - HEADACHE [None]
  - INFLUENZA LIKE ILLNESS [None]
  - NAUSEA [None]
  - VAGINAL DISCHARGE [None]
